FAERS Safety Report 6100114-4 (Version None)
Quarter: 2009Q1

REPORT INFORMATION
  Report Type: 
  Country: None (occurrence: None)
  Receive Date: 20090303
  Receipt Date: 20090225
  Transmission Date: 20090719
  Serious: Yes (Death, Other)
  Sender: FDA-Public Use
  Company Number: JP-AVENTIS-200910530JP

PATIENT
  Age: 67 Year
  Sex: Male
  Weight: 45 kg

DRUGS (7)
  1. FUROSEMIDE [Suspect]
     Indication: PLEURAL EFFUSION
     Route: 048
  2. CISPLATIN [Suspect]
     Dosage: DOSE: 100 MG/5 DAYS A WEEK
     Route: 042
  3. LISINOPRIL [Concomitant]
     Indication: HYPERTENSION
  4. BENZMARONE [Concomitant]
  5. ATORVASTATIN CALCIUM [Concomitant]
  6. CLOTIAZEPAM [Concomitant]
     Indication: INSOMNIA
  7. BROMHEXINE [Concomitant]
     Route: 055

REACTIONS (2)
  - CARDIO-RESPIRATORY ARREST [None]
  - HYPOKALAEMIA [None]
